FAERS Safety Report 19020629 (Version 1)
Quarter: 2021Q1

REPORT INFORMATION
  Report Type: Spontaneous
  Country: US (occurrence: US)
  Receive Date: 20210317
  Receipt Date: 20210317
  Transmission Date: 20210420
  Serious: Yes (Hospitalization)
  Sender: FDA-Public Use
  Company Number: US-PFIZER INC-2021263973

PATIENT
  Age: 84 Year
  Sex: Female

DRUGS (1)
  1. IBRANCE [Suspect]
     Active Substance: PALBOCICLIB
     Indication: BREAST CANCER FEMALE
     Dosage: 125 MG

REACTIONS (8)
  - White blood cell count decreased [Unknown]
  - Femur fracture [Unknown]
  - Fall [Unknown]
  - Nausea [Unknown]
  - Urinary tract infection [Unknown]
  - Diarrhoea [Recovering/Resolving]
  - Gastrooesophageal reflux disease [Unknown]
  - Illness [Unknown]
